FAERS Safety Report 4350058-3 (Version None)
Quarter: 2004Q2

REPORT INFORMATION
  Report Type: 
  Country: None (occurrence: None)
  Receive Date: 20040429
  Receipt Date: 20040324
  Transmission Date: 20050107
  Serious: Yes (Other)
  Sender: FDA-Public Use
  Company Number: DE-AMGEN-US070668

PATIENT
  Sex: Female

DRUGS (3)
  1. ENBREL [Suspect]
     Indication: RHEUMATOID ARTHRITIS
     Route: 058
     Dates: start: 20040315, end: 20040318
  2. ARAVA [Concomitant]
     Dates: start: 20010101
  3. DECORTIN [Concomitant]
     Dates: start: 19970101

REACTIONS (3)
  - ANXIETY [None]
  - DYSPNOEA [None]
  - RED BLOOD CELL SEDIMENTATION RATE INCREASED [None]
